FAERS Safety Report 17185268 (Version 1)
Quarter: 2019Q4

REPORT INFORMATION
  Report Type: Spontaneous
  Country: US (occurrence: US)
  Receive Date: 20191220
  Receipt Date: 20191220
  Transmission Date: 20200122
  Serious: No
  Sender: FDA-Public Use
  Company Number: US-THERAPEUTICSMD-2019TMD04136

PATIENT
  Age: 83 Year
  Sex: Female
  Weight: 51.7 kg

DRUGS (7)
  1. IMVEXXY [Suspect]
     Active Substance: ESTRADIOL
     Indication: AUTOIMMUNE DISORDER
     Dosage: 10 ?G, 2X/WEEK BEFORE BED
     Route: 067
     Dates: start: 201907
  2. IMVEXXY [Suspect]
     Active Substance: ESTRADIOL
     Indication: HYSTERECTOMY
  3. IMVEXXY [Suspect]
     Active Substance: ESTRADIOL
     Indication: SJOGREN^S SYNDROME
  4. NASACORT [Concomitant]
     Active Substance: TRIAMCINOLONE ACETONIDE
  5. MENEST [Concomitant]
     Active Substance: ESTROGENS, ESTERIFIED
  6. CLOBETASOL [Concomitant]
     Active Substance: CLOBETASOL
  7. BREO ELLIPTA [Concomitant]
     Active Substance: FLUTICASONE FUROATE\VILANTEROL TRIFENATATE

REACTIONS (3)
  - Vulvovaginal discomfort [Not Recovered/Not Resolved]
  - Product use complaint [Not Recovered/Not Resolved]
  - Off label use [Not Recovered/Not Resolved]

NARRATIVE: CASE EVENT DATE: 201907
